FAERS Safety Report 4801575-0 (Version None)
Quarter: 2005Q4

REPORT INFORMATION
  Report Type: 
  Country: None (occurrence: None)
  Receive Date: 20051011
  Receipt Date: 20050927
  Transmission Date: 20060501
  Serious: Yes (Hospitalization, Other)
  Sender: FDA-Public Use
  Company Number: 2005134232

PATIENT
  Age: 80 Year
  Sex: Female
  Weight: 48.9885 kg

DRUGS (2)
  1. DETROL LA [Suspect]
     Indication: HYPERTONIC BLADDER
     Dosage: (1 IN 1 D), ORAL
     Route: 048
     Dates: start: 20050923, end: 20050926
  2. ACIPHEX [Concomitant]

REACTIONS (1)
  - CHEST DISCOMFORT [None]
